FAERS Safety Report 8436845-0 (Version None)
Quarter: 2012Q2

REPORT INFORMATION
  Report Type: 
  Country: None (occurrence: None)
  Receive Date: 20120614
  Receipt Date: 20120611
  Transmission Date: 20120825
  Serious: Yes (Other)
  Sender: FDA-Public Use
  Company Number: US-BAYER-200940591NA

PATIENT
  Age: 36 Year
  Sex: Male
  Weight: 133.9 kg

DRUGS (18)
  1. TRASYLOL [Suspect]
     Dosage: LOADING DOSE - 200ML
  2. RED BLOOD CELLS [Concomitant]
  3. ASPIRIN [Concomitant]
     Route: 048
  4. AMRINONE [Concomitant]
     Dosage: UNK
     Route: 042
     Dates: start: 20010302
  5. SODIUM NITROPRUSSIDE [Concomitant]
     Dosage: UNK
     Route: 042
     Dates: start: 20010302
  6. PROTAMINE SULFATE [Concomitant]
     Dosage: UNK
     Route: 042
     Dates: start: 20010302
  7. HEPARIN [Concomitant]
     Dosage: UNK
     Dates: start: 20010302, end: 20010302
  8. NITROGLYCERIN [Concomitant]
     Dosage: UNK
     Route: 042
     Dates: start: 20110302
  9. ANCEF [Concomitant]
     Dosage: 2 G, UNK
     Route: 042
     Dates: start: 20010303
  10. GENTAMICIN [Concomitant]
     Dosage: 160 MG, UNK
     Dates: start: 20010302
  11. MANNITOL [Concomitant]
     Dosage: UNK
     Dates: start: 20010302, end: 20010302
  12. PRINIVIL [Concomitant]
     Dosage: 5 MG, QD
     Route: 048
  13. LASIX [Concomitant]
     Dosage: 40 MG, BID
     Route: 048
  14. CALCIUM CHLORIDE [Concomitant]
     Dosage: 2 G, UNK
     Dates: start: 20010302, end: 20010302
  15. SODIUM BICARBONATE [Concomitant]
     Dosage: 50 MEQ, UNK
     Dates: start: 20010302, end: 20010302
  16. TRASYLOL [Suspect]
     Indication: MITRAL VALVE REPLACEMENT
     Dosage: INITIAL DOSE - 1ML
     Route: 042
     Dates: start: 20010302, end: 20010302
  17. LIDOCAINE [Concomitant]
     Dosage: 100 MG, UNK
     Dates: start: 20010302, end: 20010302
  18. CARDIOPLEGIA [Concomitant]
     Dosage: UNK
     Dates: start: 20010302, end: 20010302

REACTIONS (11)
  - PAIN [None]
  - INJURY [None]
  - RENAL FAILURE [None]
  - EMOTIONAL DISTRESS [None]
  - FEAR [None]
  - RENAL IMPAIRMENT [None]
  - UNEVALUABLE EVENT [None]
  - RENAL INJURY [None]
  - STRESS [None]
  - ANXIETY [None]
  - ANHEDONIA [None]
